FAERS Safety Report 11381763 (Version 2)
Quarter: 2015Q3

REPORT INFORMATION
  Report Type: Report from Study
  Country: CA (occurrence: CA)
  Receive Date: 20150814
  Receipt Date: 20150821
  Transmission Date: 20151125
  Serious: Yes (Hospitalization)
  Sender: FDA-Public Use
  Company Number: PHHY2015CA086380

PATIENT
  Age: 30 Year
  Sex: Female

DRUGS (1)
  1. SANDOSTATIN [Suspect]
     Active Substance: OCTREOTIDE ACETATE
     Indication: ADENOCARCINOMA OF COLON
     Dosage: 50 UG, TID
     Route: 058
     Dates: start: 20150701

REACTIONS (7)
  - Pruritus [Recovered/Resolved]
  - Erythema [Recovered/Resolved]
  - Dehydration [Unknown]
  - Hypersensitivity [Recovered/Resolved]
  - Off label use [Unknown]
  - Vomiting [Unknown]
  - Injection site plaque [Recovered/Resolved]

NARRATIVE: CASE EVENT DATE: 201507
